FAERS Safety Report 6331790-9 (Version None)
Quarter: 2009Q3

REPORT INFORMATION
  Report Type: 
  Country: None (occurrence: None)
  Receive Date: 20090826
  Receipt Date: 20090813
  Transmission Date: 20100115
  Serious: Yes (Death)
  Sender: FDA-Public Use
  Company Number: 2009AL000343

PATIENT
  Age: 49 Year
  Sex: Female

DRUGS (10)
  1. METFORMIN HYDROCHLORIDE [Suspect]
     Indication: DIABETES MELLITUS
     Dosage: 1000 MG; BID; PO
     Route: 048
     Dates: start: 20060101
  2. AMISULPRIDE [Concomitant]
  3. INSULIN [Concomitant]
  4. TRAZODONE [Concomitant]
  5. NULYTELY [Concomitant]
  6. DIAZEPAM [Concomitant]
  7. HYDROCORTISONE [Concomitant]
  8. SENNA [Concomitant]
  9. ZOPICLONE [Concomitant]
  10. QUETIAPINE [Concomitant]

REACTIONS (8)
  - ALCOHOL USE [None]
  - DRUG LEVEL INCREASED [None]
  - DRUG TOXICITY [None]
  - OVERDOSE [None]
  - PRODUCT SUBSTITUTION ISSUE [None]
  - PULMONARY CONGESTION [None]
  - RENAL IMPAIRMENT [None]
  - SUDDEN DEATH [None]
